FAERS Safety Report 5291461-7 (Version None)
Quarter: 2007Q2

REPORT INFORMATION
  Report Type: 
  Country: None (occurrence: None)
  Receive Date: 20070403
  Receipt Date: 20070322
  Transmission Date: 20071010
  Serious: Yes (Life-Threatening, Other)
  Sender: FDA-Public Use
  Company Number: 35434

PATIENT
  Age: 56 Year
  Sex: Male

DRUGS (1)
  1. DACARBAZINE [Suspect]

REACTIONS (1)
  - MALIGNANT MELANOMA IN SITU [None]
